FAERS Safety Report 5104648-0 (Version None)
Quarter: 2006Q3

REPORT INFORMATION
  Report Type: 
  Country: None (occurrence: None)
  Receive Date: 20060912
  Receipt Date: 20060912
  Transmission Date: 20061208
  Serious: Yes (Other)
  Sender: FDA-Public Use
  Company Number: None

PATIENT
  Age: 77 Year
  Sex: Male
  Weight: 91.6266 kg

DRUGS (1)
  1. FOSAMAX [Suspect]
     Indication: OSTEOPOROSIS
     Dosage: 70 MG. WEEKLY PO
     Route: 048
     Dates: start: 20030303, end: 20060330

REACTIONS (6)
  - IMPAIRED HEALING [None]
  - OSTEONECROSIS [None]
  - POST PROCEDURAL COMPLICATION [None]
  - POSTOPERATIVE WOUND INFECTION [None]
  - PRIMARY SEQUESTRUM [None]
  - TOOTH EXTRACTION [None]
